FAERS Safety Report 9060036 (Version 1)
Quarter: 2013Q1

REPORT INFORMATION
  Report Type: Spontaneous
  Country: US (occurrence: None)
  Receive Date: 20130207
  Receipt Date: 20130207
  Transmission Date: 20140127
  Serious: No
  Sender: FDA-Public Use
  Company Number: None

PATIENT
  Age: 40 Year
  Sex: Female
  Weight: 78.02 kg

DRUGS (1)
  1. VALACYCLOVIN [Suspect]
     Indication: HERPES SIMPLEX
     Dosage: 1 GRAM ONCE DAILY

REACTIONS (5)
  - Drug ineffective [None]
  - Pain [None]
  - Condition aggravated [None]
  - Product substitution issue [None]
  - Product quality issue [None]
